FAERS Safety Report 4621570-4 (Version None)
Quarter: 2005Q1

REPORT INFORMATION
  Report Type: 
  Country: None (occurrence: None)
  Receive Date: 20050329
  Receipt Date: 20050316
  Transmission Date: 20050727
  Serious: Yes (Other)
  Sender: FDA-Public Use
  Company Number: 2005046040

PATIENT
  Age: 47 Year
  Sex: Female
  Weight: 51.7101 kg

DRUGS (1)
  1. NEURONTIN [Suspect]
     Indication: SLEEP DISORDER
     Dosage: 100 MG (100 MG, 1 IN 1 D), ORAL
     Route: 048
     Dates: start: 20041101, end: 20050101

REACTIONS (3)
  - CARDIAC VALVE DISEASE [None]
  - CARDIAC VENTRICULAR DISORDER [None]
  - HEART RATE IRREGULAR [None]
